FAERS Safety Report 15627060 (Version 2)
Quarter: 2018Q4

REPORT INFORMATION
  Report Type: Report from Study
  Country: US (occurrence: US)
  Receive Date: 20181116
  Receipt Date: 20181221
  Transmission Date: 20190205
  Serious: Yes (Hospitalization, Other)
  Sender: FDA-Public Use
  Company Number: US-MYLANLABS-2018M1086331

PATIENT
  Age: 64 Year
  Sex: Male
  Weight: 200 kg

DRUGS (2)
  1. GLATIRAMER ACETATE INJECTION [Suspect]
     Active Substance: GLATIRAMER ACETATE
     Dosage: 40 UNK
     Route: 058
  2. GLATIRAMER ACETATE INJECTION [Suspect]
     Active Substance: GLATIRAMER ACETATE
     Indication: RELAPSING-REMITTING MULTIPLE SCLEROSIS
     Dosage: 40 MG, 3XW
     Route: 058

REACTIONS (12)
  - Fall [Recovering/Resolving]
  - Sepsis [Unknown]
  - Fluid retention [Not Recovered/Not Resolved]
  - Decreased appetite [Unknown]
  - Head injury [Recovering/Resolving]
  - Neoplasm malignant [Unknown]
  - Muscular weakness [Not Recovered/Not Resolved]
  - Intervertebral disc disorder [Unknown]
  - Pneumonia [Not Recovered/Not Resolved]
  - Impaired self-care [Unknown]
  - Wheezing [Not Recovered/Not Resolved]
  - Abdominal discomfort [Unknown]

NARRATIVE: CASE EVENT DATE: 20181017
